FAERS Safety Report 5659272-8 (Version None)
Quarter: 2008Q1

REPORT INFORMATION
  Report Type: 
  Country: None (occurrence: None)
  Receive Date: 20080311
  Receipt Date: 20071017
  Transmission Date: 20080703
  Serious: No
  Sender: FDA-Public Use
  Company Number: US-BAYER-200711864BCC

PATIENT
  Age: 53 Year
  Sex: Male
  Weight: 77 kg

DRUGS (3)
  1. ALEVE [Suspect]
     Indication: BACK PAIN
     Dosage: TOTAL DAILY DOSE: 440 MG  UNIT DOSE: 220 MG
     Route: 048
     Dates: start: 20070608, end: 20070610
  2. MORPHINE [Concomitant]
  3. RESTORIL [Concomitant]

REACTIONS (3)
  - STOMACH DISCOMFORT [None]
  - THROAT IRRITATION [None]
  - WHEEZING [None]
